FAERS Safety Report 6479695-7 (Version None)
Quarter: 2009Q4

REPORT INFORMATION
  Report Type: 
  Country: None (occurrence: None)
  Receive Date: 20091208
  Receipt Date: 20091128
  Transmission Date: 20100525
  Serious: Yes (Other)
  Sender: FDA-Public Use
  Company Number: IT-ELI_LILLY_AND_COMPANY-IT200911007068

PATIENT
  Sex: Male

DRUGS (9)
  1. BYETTA [Suspect]
     Indication: TYPE 2 DIABETES MELLITUS
     Dosage: 10 UG, DAILY (1/D)
     Route: 058
     Dates: start: 20090909, end: 20090929
  2. GLIBENCLAMIDE [Concomitant]
     Indication: TYPE 2 DIABETES MELLITUS
     Dates: start: 20090101, end: 20090927
  3. AMLODIPINE [Concomitant]
     Indication: HYPERTENSION
     Dosage: UNK, UNKNOWN
     Route: 048
     Dates: start: 20090101, end: 20090927
  4. ENALAPRIL [Concomitant]
     Indication: HYPERTENSION
     Route: 048
     Dates: start: 20090101, end: 20090927
  5. TORVAST [Concomitant]
     Indication: HYPERCHOLESTEROLAEMIA
     Dosage: 10 MG, UNK
     Route: 048
     Dates: start: 20090101, end: 20090927
  6. LANSOPRAZOLE [Concomitant]
     Indication: GASTRODUODENAL ULCER
     Route: 048
     Dates: start: 20090101, end: 20090927
  7. ASPIRIN [Concomitant]
     Dosage: 100 MG, UNK
     Route: 048
     Dates: start: 20090101, end: 20090927
  8. ESAPENT [Concomitant]
     Dosage: 1000 MG, UNK
     Route: 048
     Dates: start: 20090101, end: 20090927
  9. PLAVIX [Concomitant]
     Indication: PROPHYLAXIS
     Dosage: 75 MG, UNK
     Route: 048
     Dates: start: 20090101, end: 20090927

REACTIONS (1)
  - PANCREATITIS ACUTE [None]
